FAERS Safety Report 10265447 (Version 2)
Quarter: 2014Q3

REPORT INFORMATION
  Report Type: Spontaneous
  Country: SK (occurrence: SK)
  Receive Date: 20140627
  Receipt Date: 20140718
  Transmission Date: 20150326
  Serious: Yes (Hospitalization, Disabling, Other)
  Sender: FDA-Public Use
  Company Number: SK-ASTRAZENECA-2014SE45919

PATIENT
  Age: 20692 Day
  Sex: Male

DRUGS (8)
  1. ISOPTIN SR [Concomitant]
     Active Substance: VERAPAMIL HYDROCHLORIDE
     Dosage: 1-0-0
  2. SORTIS [Concomitant]
     Active Substance: ATORVASTATIN
     Dosage: 0-0-1
  3. ANOPYRIN [Concomitant]
     Active Substance: ASPIRIN
  4. CLOPIDOGREL [Concomitant]
     Active Substance: CLOPIDOGREL BISULFATE
  5. CORYOL [Concomitant]
     Active Substance: CARVEDILOL
     Dosage: 1/2-0-1/2
  6. FURON [Concomitant]
     Dosage: 1/2-0-0
  7. BRILIQUE [Suspect]
     Active Substance: TICAGRELOR
     Indication: ACUTE CORONARY SYNDROME
     Route: 048
     Dates: end: 20140513
  8. ANP [Concomitant]

REACTIONS (9)
  - Transient ischaemic attack [Unknown]
  - Rash [Unknown]
  - Thrombocytopenia [Recovering/Resolving]
  - Vertigo [Unknown]
  - Depression [Unknown]
  - Anaemia [Unknown]
  - Thrombotic thrombocytopenic purpura [Unknown]
  - Hypertension [Unknown]
  - Pleural effusion [Unknown]

NARRATIVE: CASE EVENT DATE: 20140425
